FAERS Safety Report 17908263 (Version 1)
Quarter: 2020Q2

REPORT INFORMATION
  Report Type: Spontaneous
  Country: ES (occurrence: ES)
  Receive Date: 20200617
  Receipt Date: 20200617
  Transmission Date: 20200714
  Serious: Yes (Hospitalization, Other)
  Sender: FDA-Public Use
  Company Number: ES-SA-2020SA155559

PATIENT

DRUGS (1)
  1. RASBURICASE [Suspect]
     Active Substance: RASBURICASE
     Dosage: 1,1 MG
     Route: 042
     Dates: start: 20200521, end: 20200521

REACTIONS (1)
  - Hepatitis acute [Recovering/Resolving]

NARRATIVE: CASE EVENT DATE: 20200524
